FAERS Safety Report 23004611 (Version 2)
Quarter: 2024Q1

REPORT INFORMATION
  Report Type: Report from Study
  Country: US (occurrence: US)
  Receive Date: 20230928
  Receipt Date: 20240307
  Transmission Date: 20240410
  Serious: Yes (Other)
  Sender: FDA-Public Use
  Company Number: US-ABBVIE-5426033

PATIENT
  Sex: Male

DRUGS (7)
  1. VENCLEXTA [Suspect]
     Active Substance: VENETOCLAX
     Indication: Chronic lymphocytic leukaemia
     Dosage: TAKE 4 TABLETS BY MOUTH EVERY 24 HOURS?FIRST ADMIN DATE: 2023
     Route: 048
  2. VENCLEXTA [Suspect]
     Active Substance: VENETOCLAX
     Indication: Chronic lymphocytic leukaemia
     Dosage: LAST ADMIN DATE: 2023
     Route: 048
     Dates: start: 202306
  3. ZYLOPRIM [Concomitant]
     Active Substance: ALLOPURINOL
     Indication: Product used for unknown indication
  4. FLONASE [Concomitant]
     Active Substance: FLUTICASONE PROPIONATE
     Indication: Product used for unknown indication
     Dosage: 50 MCG/ACTUATION NASAL SPRAY (EXPIRED)
     Route: 045
  5. MOTRIN [Concomitant]
     Active Substance: IBUPROFEN
     Indication: Product used for unknown indication
  6. COZAAR [Concomitant]
     Active Substance: LOSARTAN POTASSIUM
     Indication: Product used for unknown indication
  7. ZOFRAN [Concomitant]
     Active Substance: ONDANSETRON HYDROCHLORIDE
     Indication: Product used for unknown indication

REACTIONS (17)
  - Thoracic radiculopathy [Unknown]
  - Pain in extremity [Unknown]
  - Chondrocalcinosis [Unknown]
  - Osteoarthritis [Unknown]
  - Hypoaesthesia [Unknown]
  - Chest pain [Unknown]
  - Cataract nuclear [Unknown]
  - Headache [Unknown]
  - Hypertension [Unknown]
  - Stress [Unknown]
  - Obesity [Unknown]
  - Macular oedema [Unknown]
  - COVID-19 pneumonia [Unknown]
  - Meniscus injury [Unknown]
  - Back pain [Unknown]
  - Lumbosacral radiculopathy [Unknown]
  - Arthralgia [Unknown]

NARRATIVE: CASE EVENT DATE: 20230101
